FAERS Safety Report 6856244-2 (Version None)
Quarter: 2010Q3

REPORT INFORMATION
  Report Type: 
  Country: None (occurrence: None)
  Receive Date: 20100719
  Receipt Date: 20100708
  Transmission Date: 20110219
  Serious: Yes (Other)
  Sender: FDA-Public Use
  Company Number: CA-JNJFOC-20100703036

PATIENT
  Sex: Male
  Weight: 77.8 kg

DRUGS (9)
  1. REMICADE [Suspect]
     Indication: RHEUMATOID ARTHRITIS
     Dosage: CURRENT INFUSION NUMBER 31
     Route: 042
  2. METHOTREXATE [Concomitant]
  3. ZOPICLONE [Concomitant]
     Dosage: 7.5
  4. RABEPRAZOLE SODIUM [Concomitant]
  5. PREDNISONE [Concomitant]
  6. NAPROXEN [Concomitant]
  7. OXYCET [Concomitant]
     Dosage: AS NECESSARY
  8. EXTRA STRENGTH TYLENOL [Concomitant]
  9. HORMONE SHOT [Concomitant]
     Route: 050

REACTIONS (1)
  - BASAL CELL CARCINOMA [None]
